FAERS Safety Report 4841324-3 (Version None)
Quarter: 2005Q4

REPORT INFORMATION
  Report Type: 
  Country: None (occurrence: None)
  Receive Date: 20051130
  Receipt Date: 20051111
  Transmission Date: 20060501
  Serious: No
  Sender: FDA-Public Use
  Company Number: 2005JP002157

PATIENT
  Age: 61 Year
  Sex: Male
  Weight: 66 kg

DRUGS (3)
  1. CEFAZOLIN [Suspect]
     Indication: INFECTION PROPHYLAXIS
     Route: 042
     Dates: start: 20051102, end: 20051104
  2. LOXONIN [Concomitant]
     Route: 048
     Dates: start: 20051103, end: 20051106
  3. CLARITIN [Concomitant]
     Route: 048
     Dates: start: 20051103, end: 20051106

REACTIONS (4)
  - CONDITION AGGRAVATED [None]
  - DIZZINESS [None]
  - ERYTHEMA [None]
  - THIRST [None]
